FAERS Safety Report 9999778 (Version 2)
Quarter: 2014Q1

REPORT INFORMATION
  Report Type: Report from Study
  Country: FR (occurrence: FR)
  Receive Date: 20140312
  Receipt Date: 20140320
  Transmission Date: 20141002
  Serious: Yes (Hospitalization)
  Sender: FDA-Public Use
  Company Number: FR-TEVA-466374ISR

PATIENT
  Age: 65 Year
  Sex: Male
  Weight: 49 kg

DRUGS (1)
  1. TEVAGRASTIM [Suspect]
     Indication: PROPHYLAXIS
     Route: 058
     Dates: start: 20140206, end: 20140214

REACTIONS (2)
  - Drug ineffective [Recovering/Resolving]
  - Leukopenia [Recovering/Resolving]
